FAERS Safety Report 8827413 (Version 2)
Quarter: 2012Q4

REPORT INFORMATION
  Report Type: Report from Study
  Country: JP (occurrence: JP)
  Receive Date: 20121008
  Receipt Date: 20121126
  Transmission Date: 20130627
  Serious: Yes (Death)
  Sender: FDA-Public Use
  Company Number: JP-JNJFOC-20120913231

PATIENT
  Age: 63 Year
  Sex: Female
  Weight: 68 kg

DRUGS (26)
  1. DUROTEP MT [Suspect]
     Indication: PAIN
     Dosage: 6.25 ug/hr (half dose of 12.5 ug/hr)
     Route: 062
     Dates: start: 20111209, end: 20111214
  2. DUROTEP MT [Suspect]
     Indication: PAIN
     Route: 062
     Dates: start: 20111215, end: 20120319
  3. CODEINE PHOSPHATE [Concomitant]
     Route: 048
  4. CODEINE PHOSPHATE [Concomitant]
     Route: 048
     Dates: start: 20120301, end: 20120308
  5. CODEINE PHOSPHATE [Concomitant]
     Route: 048
     Dates: start: 20111230, end: 20120106
  6. CODEINE PHOSPHATE [Concomitant]
     Route: 048
     Dates: start: 20111209, end: 20111215
  7. CODEINE PHOSPHATE [Concomitant]
     Route: 048
     Dates: start: 20111216, end: 20111223
  8. CODEINE PHOSPHATE [Concomitant]
     Route: 048
     Dates: start: 20111223, end: 20111229
  9. LYRICA [Concomitant]
     Indication: PAIN
     Route: 048
     Dates: start: 20101006
  10. CELECOX [Concomitant]
     Route: 048
  11. MUCOSTA [Concomitant]
     Indication: GASTRITIS
     Route: 048
  12. PERIACTIN [Concomitant]
     Indication: URTICARIA
     Route: 048
  13. GANATON [Concomitant]
     Indication: GASTRITIS
     Route: 048
  14. LAC-B [Concomitant]
     Route: 048
  15. METHYCOBAL [Concomitant]
     Route: 048
  16. LIPITOR [Concomitant]
     Indication: HYPERLIPIDAEMIA
     Route: 048
  17. ALOSITOL [Concomitant]
     Indication: HYPERURICAEMIA
     Route: 048
  18. OMEPRAL [Concomitant]
     Indication: GASTRIC ULCER
     Route: 048
  19. GLUFAST [Concomitant]
     Route: 048
  20. SLOW-K [Concomitant]
     Indication: HYPOKALAEMIA
     Route: 048
  21. PYRETHIA [Concomitant]
     Indication: INSOMNIA
     Route: 048
  22. PYRETHIA [Concomitant]
     Indication: URTICARIA
     Route: 048
  23. DESYREL [Concomitant]
     Route: 048
  24. PURSENNID [Concomitant]
     Route: 048
  25. TETRAMIDE [Concomitant]
     Route: 048
  26. BENZALIN [Concomitant]
     Indication: INSOMNIA
     Route: 048

REACTIONS (3)
  - Myocardial infarction [Fatal]
  - Drug administration error [Unknown]
  - Application site pruritus [Recovered/Resolved]
